FAERS Safety Report 8921614 (Version 1)
Quarter: 2012Q4

REPORT INFORMATION
  Report Type: 
  Country: GB (occurrence: GB)
  Receive Date: 20121121
  Receipt Date: 20121121
  Transmission Date: 20130627
  Serious: Yes (Disabling)
  Sender: FDA-Public Use
  Company Number: GB-MERCK-1211GBR007811

PATIENT
  Age: 20 Year

DRUGS (2)
  1. MIRTAZAPINE [Suspect]
     Route: 048
  2. ARIPIPRAZOLE [Suspect]
     Route: 048

REACTIONS (1)
  - Photopsia [Unknown]
